FAERS Safety Report 23392798 (Version 1)
Quarter: 2024Q1

REPORT INFORMATION
  Report Type: Spontaneous
  Country: US (occurrence: US)
  Receive Date: 20240111
  Receipt Date: 20240111
  Transmission Date: 20240409
  Serious: No
  Sender: FDA-Public Use
  Company Number: US-REGENERON PHARMACEUTICALS, INC.-2023-112896

PATIENT
  Sex: Male

DRUGS (2)
  1. EYLEA [Suspect]
     Active Substance: AFLIBERCEPT
     Indication: Diabetic retinal oedema
     Dosage: 2 MG, ANYWHERE FROM 6 TO 9 WEEKS, BOTH EYE AND THEY KIND OF ALTERNATE, FORMULATION: GERRESHEIMER PFS
     Dates: end: 2023
  2. EYLEA [Suspect]
     Active Substance: AFLIBERCEPT
     Dosage: 2 MG, EVERY 8 MONTHS IN LEFT EYE, FORMULATION: GERRESHEIMER PFS
     Dates: start: 2023

REACTIONS (2)
  - Unevaluable event [Not Recovered/Not Resolved]
  - Vitreous floaters [Recovering/Resolving]

NARRATIVE: CASE EVENT DATE: 20230912
